FAERS Safety Report 5703024-7 (Version None)
Quarter: 2008Q2

REPORT INFORMATION
  Report Type: 
  Country: None (occurrence: None)
  Receive Date: 20080411
  Receipt Date: 20080401
  Transmission Date: 20081010
  Serious: Yes (Death)
  Sender: FDA-Public Use
  Company Number: JP-ROCHE-556917

PATIENT
  Sex: Female

DRUGS (1)
  1. XELODA [Suspect]
     Indication: BREAST CANCER
     Dosage: DRUG NAME: XELODA 300; 3 WEEKS ADMINISTRATION FOLLOWED BY 1 WEEK'S REST
     Route: 048

REACTIONS (1)
  - INTESTINAL ISCHAEMIA [None]
